FAERS Safety Report 23575937 (Version 1)
Quarter: 2024Q1

REPORT INFORMATION
  Report Type: Spontaneous
  Country: CN (occurrence: CN)
  Receive Date: 20240228
  Receipt Date: 20240228
  Transmission Date: 20240410
  Serious: Yes (Hospitalization)
  Sender: FDA-Public Use
  Company Number: CN-PFIZER INC-PV202400026852

PATIENT
  Age: 44 Year
  Sex: Female
  Weight: 44 kg

DRUGS (2)
  1. AZITHROMYCIN [Suspect]
     Active Substance: AZITHROMYCIN
     Indication: Pyrexia
     Dosage: 0.5 G, 1X/DAY
     Route: 048
     Dates: start: 20240219, end: 20240221
  2. HERBALS\MENTHOL [Suspect]
     Active Substance: HERBALS\MENTHOL
     Indication: Pyrexia
     Dosage: 1 DF, 3X/DAY
     Route: 048
     Dates: start: 20240219, end: 20240221

REACTIONS (1)
  - Liver injury [Recovering/Resolving]

NARRATIVE: CASE EVENT DATE: 20240222
